FAERS Safety Report 8673250 (Version 4)
Quarter: 2013Q1

REPORT INFORMATION
  Report Type: Spontaneous
  Country: US (occurrence: None)
  Receive Date: 20120703
  Receipt Date: 20130228
  Transmission Date: 20140127
  Serious: Yes (Disabling, Other)
  Sender: FDA-Public Use
  Company Number: 2012P1044345

PATIENT
  Age: 84 Year
  Sex: Female
  Weight: 79.38 kg

DRUGS (10)
  1. PREDNISONE [Suspect]
     Indication: TEMPORAL ARTERITIS
     Route: 048
     Dates: start: 201201, end: 201201
  2. PREDNISONE [Suspect]
     Indication: TEMPORAL ARTERITIS
     Route: 048
     Dates: start: 201201
  3. PREDNISONE [Suspect]
     Indication: TEMPORAL ARTERITIS
     Route: 048
     Dates: start: 201201
  4. PREDNISONE [Suspect]
     Indication: TEMPORAL ARTERITIS
     Route: 048
     Dates: start: 201001
  5. PROPRANOLOL [Concomitant]
  6. ALPRAZOLAM [Concomitant]
  7. AMLODIPINE BESYLATE [Concomitant]
  8. FISH OIL [Concomitant]
  9. FIBER LAXATIVE TABLETS [Concomitant]
  10. VENLAFAXINE HCL [Concomitant]

REACTIONS (10)
  - Insomnia [None]
  - Abasia [None]
  - Asthenia [None]
  - Dizziness [None]
  - Walking aid user [None]
  - Abdominal pain upper [None]
  - Irritability [None]
  - Drug administration error [None]
  - Blindness unilateral [None]
  - Alopecia [None]
